FAERS Safety Report 22397509 (Version 1)
Quarter: 2023Q2

REPORT INFORMATION
  Report Type: Spontaneous
  Country: CR (occurrence: None)
  Receive Date: 20230602
  Receipt Date: 20230602
  Transmission Date: 20230721
  Serious: Yes (Life-Threatening)
  Sender: FDA-Public Use
  Company Number: CR-ROCHE-3359420

PATIENT
  Age: 40 Year
  Sex: Male

DRUGS (1)
  1. POLATUZUMAB VEDOTIN [Suspect]
     Active Substance: POLATUZUMAB VEDOTIN
     Indication: Diffuse large B-cell lymphoma refractory
     Dosage: 6 CYCLES
     Route: 065
     Dates: start: 202110, end: 2022

REACTIONS (1)
  - Pharyngeal mass [Unknown]

NARRATIVE: CASE EVENT DATE: 20230101
